FAERS Safety Report 5927384-7 (Version None)
Quarter: 2008Q4

REPORT INFORMATION
  Report Type: 
  Country: None (occurrence: None)
  Receive Date: 20081021
  Receipt Date: 20081021
  Transmission Date: 20090506
  Serious: No
  Sender: FDA-Public Use
  Company Number: None

PATIENT
  Age: 60 Year
  Sex: Female
  Weight: 60.782 kg

DRUGS (2)
  1. FASLODEX [Suspect]
     Indication: BREAST CANCER
     Dosage: EVERY 2 WKS
     Dates: start: 20080510, end: 20080610
  2. FASLODEX [Suspect]
     Indication: BREAST CANCER
     Dosage: EVERY 2 WKS
     Dates: start: 20080610, end: 20080610

REACTIONS (6)
  - ARTHRALGIA [None]
  - INJECTION SITE REACTION [None]
  - MEDICATION ERROR [None]
  - MUSCLE SPASMS [None]
  - PAIN IN EXTREMITY [None]
  - SCIATIC NERVE INJURY [None]
